FAERS Safety Report 17666746 (Version 2)
Quarter: 2020Q2

REPORT INFORMATION
  Report Type: Report from Study
  Country: CN (occurrence: TW)
  Receive Date: 20200414
  Receipt Date: 20200423
  Transmission Date: 20200713
  Serious: Yes (Death, Hospitalization)
  Sender: FDA-Public Use
  Company Number: CN-BAYER-2020-060795

PATIENT
  Age: 57 Year
  Sex: Female

DRUGS (3)
  1. ADEMPAS [Suspect]
     Active Substance: RIOCIGUAT
     Indication: PULMONARY HYPERTENSION
     Dosage: 1 MG
     Route: 048
     Dates: start: 20200317
  2. ADEMPAS [Suspect]
     Active Substance: RIOCIGUAT
     Indication: PULMONARY HYPERTENSION
     Dosage: 1.5 MG
     Route: 048
     Dates: start: 20200319
  3. ADEMPAS [Suspect]
     Active Substance: RIOCIGUAT
     Indication: PULMONARY HYPERTENSION
     Dosage: 1.5 MG, Q8HR
     Route: 048
     Dates: start: 20200402, end: 202004

REACTIONS (5)
  - Localised oedema [None]
  - Dyspnoea [Fatal]
  - Respiratory failure [Fatal]
  - Cardiac failure [Fatal]
  - Oedema peripheral [None]

NARRATIVE: CASE EVENT DATE: 202004
